FAERS Safety Report 19673396 (Version 3)
Quarter: 2021Q3

REPORT INFORMATION
  Report Type: Spontaneous
  Country: FR (occurrence: FR)
  Receive Date: 20210809
  Receipt Date: 20210923
  Transmission Date: 20211014
  Serious: Yes (Hospitalization, Other)
  Sender: FDA-Public Use
  Company Number: FR-AUROBINDO-AUR-APL-2021-033618

PATIENT
  Age: 35 Year
  Sex: Male
  Weight: 39 kg

DRUGS (15)
  1. CERTICAN [Interacting]
     Active Substance: EVEROLIMUS
     Dosage: 0.75 UNITS UNKNOWN TOTAL DAILY DOSE
     Route: 065
     Dates: start: 20200821, end: 20200903
  2. CERTICAN [Interacting]
     Active Substance: EVEROLIMUS
     Indication: CATHETER REMOVAL
     Dosage: UNK
     Route: 065
  3. CERTICAN [Interacting]
     Active Substance: EVEROLIMUS
     Dosage: 2 UNITS UNKNOWN, TOTAL DAILY DOSE
     Route: 065
     Dates: start: 20201006
  4. CORTANCYL [Concomitant]
     Active Substance: PREDNISONE
     Dosage: 20 UNITS UNKNOWN TOTAL DAILY DOSE
     Route: 065
     Dates: start: 20200425, end: 20200502
  5. CORTANCYL [Concomitant]
     Active Substance: PREDNISONE
     Dosage: 2.5 UNITS UNKNOWN TOTAL DAILY DOSE
     Route: 065
     Dates: start: 20200506
  6. FLUCONAZOLE. [Suspect]
     Active Substance: FLUCONAZOLE
     Indication: URINARY TRACT INFECTION FUNGAL
     Dosage: UNK UNK, UNKNOWN FREQ.
     Route: 065
  7. CERTICAN [Interacting]
     Active Substance: EVEROLIMUS
     Indication: IMMUNOSUPPRESSANT DRUG THERAPY
     Dosage: 2 UNITS UNKNOWN TOTAL DAILY DOSE
     Route: 065
     Dates: start: 20200606, end: 20200807
  8. CORTANCYL [Concomitant]
     Active Substance: PREDNISONE
     Indication: IMMUNOSUPPRESSANT DRUG THERAPY
     Dosage: 5 UNITS UNKNOWN TOTAL DAILY DOSE
     Route: 065
     Dates: start: 20170622, end: 20180523
  9. CERTICAN [Interacting]
     Active Substance: EVEROLIMUS
     Dosage: 1 UNITS UNKNOWN TOTAL DAILY DOSE
     Route: 065
     Dates: start: 20200917, end: 20201005
  10. TACROLIMUS. [Interacting]
     Active Substance: TACROLIMUS
     Dosage: 2 MILLIGRAM, ONCE A DAY
     Route: 048
     Dates: start: 20170826
  11. TACROLIMUS. [Interacting]
     Active Substance: TACROLIMUS
     Indication: IMMUNOSUPPRESSION
     Dosage: UNK
     Route: 065
  12. CORTANCYL [Concomitant]
     Active Substance: PREDNISONE
     Dosage: 20 UNITS UNKNOWN TOTAL DAILY DOSE
     Route: 065
     Dates: start: 20200504, end: 20200505
  13. CERTICAN [Interacting]
     Active Substance: EVEROLIMUS
     Dosage: 0.5 UNITS UNKNOWN TOTAL DAILY DOSE
     Route: 065
     Dates: start: 20200904, end: 20200916
  14. CERTICAN [Interacting]
     Active Substance: EVEROLIMUS
     Dosage: 1 UNITS UNKNOWN TOTAL DAILY DOSE
     Route: 065
     Dates: start: 20200808, end: 20200820
  15. CORTANCYL [Concomitant]
     Active Substance: PREDNISONE
     Dosage: 2.5 UNITS UNKNOWN TOTAL DAILY DOSE
     Route: 065
     Dates: start: 20190524, end: 20200423

REACTIONS (2)
  - Acute kidney injury [Recovered/Resolved]
  - Drug interaction [Unknown]

NARRATIVE: CASE EVENT DATE: 20200820
